FAERS Safety Report 6793687-X (Version None)
Quarter: 2010Q2

REPORT INFORMATION
  Report Type: 
  Country: None (occurrence: None)
  Receive Date: 20100624
  Receipt Date: 20090113
  Transmission Date: 20101027
  Serious: No
  Sender: FDA-Public Use
  Company Number: US-PFIZER INC-2009156064

PATIENT
  Sex: Female
  Weight: 63.502 kg

DRUGS (3)
  1. XALATAN [Suspect]
     Indication: GLAUCOMA
     Dosage: 1 GTT, 1X/DAY
     Route: 047
  2. PREMARIN [Concomitant]
     Dosage: UNK
  3. PROVERA [Concomitant]
     Dosage: UNK

REACTIONS (1)
  - EYE IRRITATION [None]
